FAERS Safety Report 16906821 (Version 2)
Quarter: 2019Q4

REPORT INFORMATION
  Report Type: Spontaneous
  Country: US (occurrence: US)
  Receive Date: 20191011
  Receipt Date: 20191025
  Transmission Date: 20200122
  Serious: No
  Sender: FDA-Public Use
  Company Number: US-BIOGEN-2019BI00789610

PATIENT
  Age: 35 Year
  Sex: Female

DRUGS (1)
  1. SPINRAZA [Suspect]
     Active Substance: NUSINERSEN
     Indication: SPINAL MUSCULAR ATROPHY
     Route: 037
     Dates: start: 20180724

REACTIONS (7)
  - Gait disturbance [Unknown]
  - Dizziness postural [Unknown]
  - Drug ineffective [Unknown]
  - Balance disorder [Unknown]
  - Cognitive disorder [Unknown]
  - Therapeutic response shortened [Unknown]
  - General physical health deterioration [Unknown]

NARRATIVE: CASE EVENT DATE: 20190918
